FAERS Safety Report 14520220 (Version 2)
Quarter: 2018Q1

REPORT INFORMATION
  Report Type: Report from Study
  Country: US (occurrence: US)
  Receive Date: 20180212
  Receipt Date: 20180309
  Transmission Date: 20180509
  Serious: Yes (Death)
  Sender: FDA-Public Use
  Company Number: US-PFIZER INC-2018058616

PATIENT

DRUGS (7)
  1. CYCLOPHOSPHAMIDE. [Suspect]
     Active Substance: CYCLOPHOSPHAMIDE
     Indication: FOLLICLE CENTRE LYMPHOMA, FOLLICULAR GRADE I, II, III
     Dosage: 750 MG/M2, CYCLIC, ON DAY 1, EVERY 21 DAYS FOR UP TO SIX CYCLES
     Route: 042
  2. PREDNISONE. [Suspect]
     Active Substance: PREDNISONE
     Indication: FOLLICLE CENTRE LYMPHOMA, FOLLICULAR GRADE I, II, III
     Dosage: 100 MG, DAILY, DAYS 1-5, EVERY 21 DAYS FOR UP TO SIX CYCLES
     Route: 048
  3. VINCRISTINE SULFATE. [Suspect]
     Active Substance: VINCRISTINE SULFATE
     Indication: FOLLICLE CENTRE LYMPHOMA, FOLLICULAR GRADE I, II, III
     Dosage: 1.4 MG/M2, CYCLIC (CAPPED AT 2 MG), ON DAY 1, EVERY 21 DAYS FOR UP TO SIX CYCLES
     Route: 042
  4. DOXORUBICIN HCL [Suspect]
     Active Substance: DOXORUBICIN HYDROCHLORIDE
     Indication: FOLLICLE CENTRE LYMPHOMA, FOLLICULAR GRADE I, II, III
     Dosage: 50 MG/M2, CYCLIC, ON DAY 1, EVERY 21 DAYS FOR UP TO SIX CYCLES
     Route: 042
  5. RITUXIMAB. [Suspect]
     Active Substance: RITUXIMAB
     Indication: FOLLICLE CENTRE LYMPHOMA, FOLLICULAR GRADE I, II, III
     Dosage: 375 MG/M2, CYCLIC, DAY 1, EVERY 21 DAYS OF CYCLES 1-4
  6. TOSITUMOMAB I-131 [Suspect]
     Active Substance: TOSITUMOMAB I-131
     Indication: FOLLICLE CENTRE LYMPHOMA, FOLLICULAR GRADE I, II, III
     Dosage: 35 MG, DOSIMETRIC, CYCLIC (WITHIN 12 WEEKS AFTER THE SIXTH CYCLE OF CHOP)
     Route: 042
  7. TOSITUMOMAB [Suspect]
     Active Substance: TOSITUMOMAB
     Indication: FOLLICLE CENTRE LYMPHOMA, FOLLICULAR GRADE I, II, III
     Dosage: 450 MG (UNLABELLED)
     Route: 042

REACTIONS (1)
  - Death [Fatal]
